FAERS Safety Report 24903702 (Version 1)
Quarter: 2025Q1

REPORT INFORMATION
  Report Type: Spontaneous
  Country: CA (occurrence: CA)
  Receive Date: 20250130
  Receipt Date: 20250130
  Transmission Date: 20250409
  Serious: Yes (Hospitalization, Other)
  Sender: NORDIC PHARMA
  Company Number: CA-NORDICGR-058679

PATIENT
  Sex: Male

DRUGS (6)
  1. METHOTREXATE [Suspect]
     Active Substance: METHOTREXATE
     Indication: Product used for unknown indication
     Route: 065
  2. HULIO [Concomitant]
     Active Substance: ADALIMUMAB-FKJP
     Indication: Uveitis
     Route: 065
  3. HULIO [Concomitant]
     Active Substance: ADALIMUMAB-FKJP
     Indication: Uveitis
     Route: 058
  4. HULIO [Concomitant]
     Active Substance: ADALIMUMAB-FKJP
     Indication: Uveitis
     Route: 065
  5. HULIO [Concomitant]
     Active Substance: ADALIMUMAB-FKJP
     Indication: Uveitis
     Route: 058
  6. HULIO [Concomitant]
     Active Substance: ADALIMUMAB-FKJP
     Indication: Uveitis
     Route: 065

REACTIONS (11)
  - Circumstance or information capable of leading to medication error [Unknown]
  - Therapy interrupted [Unknown]
  - Device leakage [Unknown]
  - Product packaging issue [Unknown]
  - Depression [Unknown]
  - Nasopharyngitis [Unknown]
  - Uveitis [Unknown]
  - Product storage error [Unknown]
  - Treatment noncompliance [Unknown]
  - Viral infection [Unknown]
  - Product administered at inappropriate site [Unknown]
